FAERS Safety Report 7396132-9 (Version None)
Quarter: 2011Q2

REPORT INFORMATION
  Report Type: 
  Country: None (occurrence: None)
  Receive Date: 20110406
  Receipt Date: 20110331
  Transmission Date: 20111010
  Serious: Yes (Death, Hospitalization)
  Sender: FDA-Public Use
  Company Number: NL-GENZYME-CAMP-1001206

PATIENT
  Age: 56 Year
  Sex: Male

DRUGS (22)
  1. FLUDARA [Suspect]
     Dosage: 120 MG/M2, PER CYCLE, EVERY 4 WEEKS
     Route: 048
  2. CYCLOPHOSPHAMIDE [Suspect]
     Indication: CHRONIC LYMPHOCYTIC LEUKAEMIA
     Dosage: 750 MG/M2, PER CYCLE, EVERY 4 WEEKS
     Route: 048
     Dates: start: 20091001
  3. CYCLOPHOSPHAMIDE [Suspect]
     Dosage: 750 MG/M2, PER CYCLE, EVERY 4 WEEKS
     Route: 048
  4. FLUDARA [Suspect]
     Dosage: 120 MG/M2, PER CYCLE, EVERY 4 WEEKS
     Route: 048
     Dates: end: 20091221
  5. CYCLOPHOSPHAMIDE [Suspect]
     Dosage: 750 MG/M2, PER CYCLE, EVERY 4 WEEKS
     Route: 048
  6. TRIMETHOPRIM + SULFAMETHOXAZOLE [Concomitant]
     Indication: ANTIFUNGAL PROPHYLAXIS
     Dosage: UNK
     Route: 065
  7. CYCLOPHOSPHAMIDE [Suspect]
     Dosage: 750 MG/M2, PER CYCLE, EVERY 4 WEEKS
     Route: 048
  8. ACETYLSALICYLIC ACID SRT [Concomitant]
     Indication: PRODUCT USED FOR UNKNOWN INDICATION
     Dosage: UNK
     Route: 065
  9. FLUDARA [Suspect]
     Indication: CHRONIC LYMPHOCYTIC LEUKAEMIA
     Dosage: 120 MG/M2, PER CYCLE, EVERY 4 WEEKS
     Route: 048
     Dates: start: 20091001
  10. FLUDARA [Suspect]
     Dosage: 120 MG/M2, PER CYCLE, EVERY 4 WEEKS
     Route: 048
  11. CAMPATH [Suspect]
     Dosage: 30 MG, QD, DAY 1
     Route: 065
  12. VALACICLOVIR [Concomitant]
     Indication: ANTIVIRAL PROPHYLAXIS
     Dosage: UNK
     Route: 065
  13. INSULIN [Concomitant]
     Indication: PRODUCT USED FOR UNKNOWN INDICATION
     Dosage: UNK
     Route: 065
  14. CAMPATH [Suspect]
     Indication: CHRONIC LYMPHOCYTIC LEUKAEMIA
     Dosage: 30 MG, QD, DAY -1, 0, 1
     Route: 065
     Dates: start: 20091001
  15. CAMPATH [Suspect]
     Dosage: 30 MG, QD, DAY 1
     Route: 065
  16. CAMPATH [Suspect]
     Dosage: 30 MG, QD, DAY 1
     Route: 065
  17. CAMPATH [Suspect]
     Dosage: 30 MG, QD, DAY 1
     Route: 065
  18. CYCLOPHOSPHAMIDE [Suspect]
     Dosage: 750 MG/M2, PER CYCLE, EVERY 4 WEEKS
     Route: 048
     Dates: end: 20091220
  19. CAMPATH [Suspect]
     Dosage: 30 MG, QD, DAY 1
     Route: 065
     Dates: end: 20091221
  20. FLUDARA [Suspect]
     Dosage: 120 MG/M2, PER CYCLE, EVERY 4 WEEKS
     Route: 048
  21. FLUDARA [Suspect]
     Dosage: 120 MG/M2, PER CYCLE, EVERY 4 WEEKS
     Route: 048
  22. CYCLOPHOSPHAMIDE [Suspect]
     Dosage: 750 MG/M2, PER CYCLE,EVERY 4 WEEKS
     Route: 048

REACTIONS (1)
  - CENTRAL NERVOUS SYSTEM LYMPHOMA [None]
